FAERS Safety Report 9642430 (Version 2)
Quarter: 2013Q4

REPORT INFORMATION
  Report Type: Spontaneous
  Country: ES (occurrence: ES)
  Receive Date: 20131024
  Receipt Date: 20131024
  Transmission Date: 20140711
  Serious: Yes (Other)
  Sender: FDA-Public Use
  Company Number: ES-AMGEN-ESPSP2013068092

PATIENT
  Age: 41 Year
  Sex: Male

DRUGS (1)
  1. ENBREL [Suspect]
     Indication: PRODUCT USED FOR UNKNOWN INDICATION
     Dosage: UNK, ONCE WEEKLY
     Route: 058
     Dates: start: 200403, end: 200410

REACTIONS (4)
  - Drug ineffective for unapproved indication [Unknown]
  - Intestinal stenosis [Unknown]
  - Growing pains [Unknown]
  - Inflammation [Unknown]
